FAERS Safety Report 7902278-6 (Version None)
Quarter: 2011Q4

REPORT INFORMATION
  Report Type: 
  Country: None (occurrence: None)
  Receive Date: 20111108
  Receipt Date: 20111105
  Transmission Date: 20120403
  Serious: Yes (Hospitalization)
  Sender: FDA-Public Use
  Company Number: IT-PFIZER INC-2011272518

PATIENT
  Age: 25 Year
  Sex: Male

DRUGS (4)
  1. HALDOL [Suspect]
     Dosage: 5 MG, AS NEEDED
     Route: 030
     Dates: start: 20111018, end: 20111018
  2. CHLORPROMAZINE HCL [Suspect]
     Dosage: 50 MG, AS NEEDED
     Route: 030
     Dates: start: 20111018, end: 20111018
  3. ZIPRASIDONE HYDROCHLORIDE [Suspect]
     Dosage: 160 MG, DAILY
     Route: 048
     Dates: start: 20110929, end: 20111014
  4. ABILIFY [Concomitant]
     Dosage: 2.5 MG, UNK
     Route: 030

REACTIONS (4)
  - AGITATION [None]
  - HALLUCINATION [None]
  - ACUTE PSYCHOSIS [None]
  - HYPERAEMIA [None]
